FAERS Safety Report 10724510 (Version 2)
Quarter: 2015Q1

REPORT INFORMATION
  Report Type: Spontaneous
  Country: US (occurrence: US)
  Receive Date: 20150120
  Receipt Date: 20150216
  Transmission Date: 20150721
  Serious: No
  Sender: FDA-Public Use
  Company Number: US-PFIZER INC-2015016760

PATIENT
  Age: 65 Year
  Sex: Female
  Weight: 56 kg

DRUGS (2)
  1. PREDNISONE. [Concomitant]
     Active Substance: PREDNISONE
  2. XELJANZ [Suspect]
     Active Substance: TOFACITINIB CITRATE
     Indication: RHEUMATOID ARTHRITIS
     Dosage: 5 MG, 2X/DAY
     Route: 048
     Dates: start: 201412, end: 201501

REACTIONS (9)
  - Product label issue [Unknown]
  - Oral pain [Not Recovered/Not Resolved]
  - Arthralgia [Recovered/Resolved]
  - Oral discomfort [Recovering/Resolving]
  - Pain in extremity [Recovered/Resolved]
  - Restlessness [Unknown]
  - Tinnitus [Not Recovered/Not Resolved]
  - Joint effusion [Recovering/Resolving]
  - Sensitivity of teeth [Not Recovered/Not Resolved]

NARRATIVE: CASE EVENT DATE: 201412
